FAERS Safety Report 16535412 (Version 1)
Quarter: 2019Q3

REPORT INFORMATION
  Report Type: Spontaneous
  Country: NL (occurrence: NL)
  Receive Date: 20190705
  Receipt Date: 20190705
  Transmission Date: 20191004
  Serious: Yes (Other)
  Sender: FDA-Public Use
  Company Number: NL-TEVA-2019-NL-1073286

PATIENT
  Age: 7 Month
  Sex: Female
  Weight: 7 kg

DRUGS (2)
  1. VIGABATRINE [Concomitant]
     Active Substance: VIGABATRIN
     Dates: start: 20190508
  2. PREDNISOLON DRANK, 5 MG/ML (MILLIGRAM PER MILLILITER) [Suspect]
     Active Substance: PREDNISOLONE
     Indication: INFANTILE SPASMS
     Dosage: 4 TIMES A DAY 10 MG
     Dates: start: 20190516

REACTIONS (1)
  - Bradycardia [Not Recovered/Not Resolved]

NARRATIVE: CASE EVENT DATE: 20190518
